FAERS Safety Report 9992268 (Version 2)
Quarter: 2014Q1

REPORT INFORMATION
  Report Type: Spontaneous
  Country: US (occurrence: US)
  Receive Date: 20140310
  Receipt Date: 20140310
  Transmission Date: 20141002
  Serious: Yes (Disabling)
  Sender: FDA-Public Use
  Company Number: US-GE HEALTHCARE MEDICAL DIAGNOSTICS-OSCN-PR-0912S-0533

PATIENT
  Sex: Female

DRUGS (4)
  1. OMNISCAN [Suspect]
     Indication: PRODUCT USED FOR UNKNOWN INDICATION
     Route: 042
     Dates: start: 20060807, end: 20060807
  2. OMNISCAN [Suspect]
     Indication: PRODUCT USED FOR UNKNOWN INDICATION
     Route: 042
     Dates: start: 20070110, end: 20070110
  3. OMNISCAN [Suspect]
     Indication: ARTERITIS
     Route: 042
     Dates: start: 20070129, end: 20070129
  4. GADOLINIUM (UNSPECIFIED) [Suspect]
     Indication: RENAL CYST
     Route: 042
     Dates: start: 20041223, end: 20041223

REACTIONS (1)
  - Nephrogenic systemic fibrosis [Not Recovered/Not Resolved]
